FAERS Safety Report 20672369 (Version 1)
Quarter: 2022Q2

REPORT INFORMATION
  Report Type: Spontaneous
  Country: CA (occurrence: CA)
  Receive Date: 20220405
  Receipt Date: 20220405
  Transmission Date: 20220721
  Serious: Yes (Other)
  Sender: FDA-Public Use
  Company Number: CA-TEVA-2022-CA-2022830

PATIENT
  Age: 59 Year
  Sex: Female

DRUGS (1)
  1. CIPROFLOXACIN [Suspect]
     Active Substance: CIPROFLOXACIN
     Route: 048

REACTIONS (5)
  - Erythema [Unknown]
  - Eye pain [Unknown]
  - Nausea [Unknown]
  - Periorbital oedema [Unknown]
  - Vomiting [Unknown]
